FAERS Safety Report 5455634-2 (Version None)
Quarter: 2007Q3

REPORT INFORMATION
  Report Type: 
  Country: None (occurrence: None)
  Receive Date: 20070914
  Receipt Date: 20070830
  Transmission Date: 20080115
  Serious: Yes (Hospitalization)
  Sender: FDA-Public Use
  Company Number: 017147

PATIENT
  Age: 56 Year
  Sex: Female
  Weight: 97.1 kg

DRUGS (4)
  1. AMPHETAMINE AND DEXTROAMPHETAMINE SALTS [Suspect]
     Indication: FIBROMYALGIA
     Dosage: 20 MG, TID, ORAL
     Route: 048
     Dates: start: 20030101, end: 20070809
  2. AMPHETAMINE AND DEXTROAMPHETAMINE SALTS [Suspect]
     Indication: FIBROMYALGIA
     Dosage: 20 MG, TID, ORAL
     Route: 048
     Dates: start: 20070801
  3. ANTIHYPERTENSIVES [Concomitant]
  4. DIOVAN [Concomitant]

REACTIONS (6)
  - DRUG INEFFECTIVE [None]
  - FATIGUE [None]
  - JOINT SPRAIN [None]
  - LIGAMENT INJURY [None]
  - LOWER LIMB FRACTURE [None]
  - THROMBOSIS [None]
